FAERS Safety Report 11910982 (Version 1)
Quarter: 2016Q1

REPORT INFORMATION
  Report Type: Spontaneous
  Country: US (occurrence: None)
  Receive Date: 20160111
  Receipt Date: 20160111
  Transmission Date: 20160526
  Serious: No
  Sender: FDA-Public Use
  Company Number: None

PATIENT
  Age: 30 Year
  Sex: Female
  Weight: 75.75 kg

DRUGS (6)
  1. AZITHROMYCIN 250MG [Suspect]
     Active Substance: AZITHROMYCIN ANHYDROUS
     Indication: BACTERIAL INFECTION
     Dosage: 2 TABS/1TSB
     Route: 048
     Dates: start: 20160105, end: 20160107
  2. MULTIVITAMIN [Concomitant]
     Active Substance: VITAMINS
  3. ZITHROMAX [Concomitant]
     Active Substance: AZITHROMYCIN DIHYDRATE
  4. B VITAMIN [Concomitant]
  5. OMEGA 3 [Concomitant]
     Active Substance: OMEGA-3 FATTY ACIDS
  6. BIOTIN CHEWS [Concomitant]

REACTIONS (4)
  - Fatigue [None]
  - Pruritus generalised [None]
  - Glossodynia [None]
  - Abdominal discomfort [None]

NARRATIVE: CASE EVENT DATE: 20160107
